FAERS Safety Report 6386316-0 (Version None)
Quarter: 2009Q4

REPORT INFORMATION
  Report Type: 
  Country: None (occurrence: None)
  Receive Date: 20091002
  Receipt Date: 20090922
  Transmission Date: 20100525
  Serious: Yes (Other)
  Sender: FDA-Public Use
  Company Number: PHHY2009CA35869

PATIENT
  Sex: Female

DRUGS (1)
  1. SANDOSTATIN LAR [Suspect]
     Indication: ACROMEGALY
     Dosage: 20 MG, QMO
     Route: 030
     Dates: start: 20090303

REACTIONS (8)
  - ANGER [None]
  - CONFUSIONAL STATE [None]
  - EYELID DISORDER [None]
  - FATIGUE [None]
  - HEADACHE [None]
  - NASAL CONGESTION [None]
  - SPEECH DISORDER [None]
  - STRESS [None]
